FAERS Safety Report 10349217 (Version 2)
Quarter: 2014Q3

REPORT INFORMATION
  Report Type: Report from Study
  Country: DE (occurrence: DE)
  Receive Date: 20140730
  Receipt Date: 20140924
  Transmission Date: 20150326
  Serious: Yes (Life-Threatening, Hospitalization)
  Sender: FDA-Public Use
  Company Number: DE-UCBSA-2014007073

PATIENT
  Sex: Male

DRUGS (4)
  1. LACOSAMIDE [Suspect]
     Active Substance: LACOSAMIDE
     Indication: STATUS EPILEPTICUS
     Dosage: 150 MG, 2X/DAY (BID)
     Route: 042
     Dates: start: 20120215, end: 20120216
  2. LACOSAMIDE [Suspect]
     Active Substance: LACOSAMIDE
     Indication: CONVULSION
     Dosage: 300 MG, ONCE DAILY (QD)
     Route: 042
     Dates: start: 20120214, end: 20120214
  3. KEPPRA [Concomitant]
     Active Substance: LEVETIRACETAM
     Indication: STATUS EPILEPTICUS
     Dosage: 3000 MG, UNK
     Route: 042
     Dates: start: 20120213
  4. RIVOTRIL [Concomitant]
     Active Substance: CLONAZEPAM
     Indication: STATUS EPILEPTICUS
     Dosage: 3 MG, UNK
     Route: 042
     Dates: start: 20120213

REACTIONS (1)
  - Bronchopneumonia [Not Recovered/Not Resolved]

NARRATIVE: CASE EVENT DATE: 20120215
